FAERS Safety Report 7639693-4 (Version None)
Quarter: 2011Q3

REPORT INFORMATION
  Report Type: 
  Country: None (occurrence: None)
  Receive Date: 20110727
  Receipt Date: 20110712
  Transmission Date: 20111222
  Serious: Yes (Hospitalization)
  Sender: FDA-Public Use
  Company Number: PL-ARROW GEN-2011-10987

PATIENT
  Age: 69 Year
  Sex: Female

DRUGS (8)
  1. MIRTAZAPINE [Suspect]
     Indication: DEPRESSION
     Dosage: 30 TO 45 MG, DAILY
  2. SERTRALINE HYDROCHLORIDE [Suspect]
     Indication: DEPRESSION
     Dosage: 100 MG, DAILY
  3. OLANZAPINE [Suspect]
     Indication: DEPRESSION
     Dosage: 5 MG, DAILY
  4. VENLAFAXINE HYDROCHLORIDE [Suspect]
     Indication: DEPRESSION
     Dosage: 225 MG, DAILY
  5. PAROXETINE HYDROCHLORIDE [Suspect]
     Indication: DEPRESSION
     Dosage: 20 MG, DAILY
  6. ESCITALOPRAM [Suspect]
     Indication: DEPRESSION
     Dosage: 20 MG, DAILY
  7. REBOXETINE [Suspect]
     Indication: DEPRESSION
     Dosage: 4 MG, DAILY
  8. QUETIAPINE [Suspect]
     Indication: DEPRESSION
     Dosage: 100 TO 300 MG, DAILY

REACTIONS (1)
  - PULMONARY EMBOLISM [None]
